FAERS Safety Report 4472044-5 (Version None)
Quarter: 2004Q4

REPORT INFORMATION
  Report Type: 
  Country: None (occurrence: None)
  Receive Date: 20041012
  Receipt Date: 20041001
  Transmission Date: 20050328
  Serious: Yes (Death, Other)
  Sender: FDA-Public Use
  Company Number: 002835

PATIENT
  Age: 61 Year
  Sex: Female

DRUGS (4)
  1. MEDROXYPROGESTERONE ACETATE [Suspect]
     Dosage: ORAL
     Route: 048
     Dates: start: 19970101, end: 20020322
  2. PROVERA [Suspect]
     Dosage: ORAL
     Route: 048
     Dates: start: 19970101, end: 20020322
  3. MEDROXYPROGESTERONE ACETATE [Suspect]
     Dosage: ORAL
     Route: 048
     Dates: start: 19970101, end: 20020322
  4. PREMARIN [Suspect]
     Dosage: ORAL
     Route: 048
     Dates: start: 19970101, end: 20020322

REACTIONS (1)
  - CEREBELLAR HAEMORRHAGE [None]
